FAERS Safety Report 8892996 (Version 2)
Quarter: 2012Q4

REPORT INFORMATION
  Report Type: Spontaneous
  Country: US (occurrence: None)
  Receive Date: 20121101
  Receipt Date: 20121129
  Transmission Date: 20130627
  Serious: Yes (Hospitalization, Other)
  Sender: FDA-Public Use
  Company Number: ADR-2012-01991

PATIENT
  Age: 43 Year
  Sex: Male

DRUGS (10)
  1. LIORESAL [Suspect]
     Indication: SPASTICITY
  2. LIORESAL [Suspect]
     Indication: SPASTIC PARAPARESIS
  3. ASPIRIN [Concomitant]
  4. CELEXA [Concomitant]
  5. COLACE [Concomitant]
  6. MIRALAX [Concomitant]
  7. INDERAL [Concomitant]
  8. FLOMAX [Concomitant]
  9. TYLENOL [Concomitant]
  10. AMBIEN [Concomitant]

REACTIONS (8)
  - Medical device complication [None]
  - Abasia [None]
  - Dysuria [None]
  - Sensation of heaviness [None]
  - Nausea [None]
  - Vomiting [None]
  - Dizziness [None]
  - Walking aid user [None]
